FAERS Safety Report 4856276-X (Version None)
Quarter: 2005Q4

REPORT INFORMATION
  Report Type: 
  Country: None (occurrence: None)
  Receive Date: 20051215
  Receipt Date: 20051206
  Transmission Date: 20060501
  Serious: Yes (Other)
  Sender: FDA-Public Use
  Company Number: 2005165441

PATIENT
  Sex: Female

DRUGS (13)
  1. DEPO-MEDROL [Suspect]
     Indication: ARTHRITIS
     Dosage: 40 MG (40 MG CYCLIC INTERVAL EVERY 3 MONTHS)
     Dates: start: 19980101
  2. BUDESONIDE [Suspect]
     Indication: CHRONIC OBSTRUCTIVE PULMONARY DISEASE
     Dosage: 1600 MG (800 MCG 2 IN 1 D)
     Dates: start: 19900101
  3. PREDNISOLONE [Suspect]
     Indication: CHRONIC OBSTRUCTIVE PULMONARY DISEASE
     Dosage: 5 MG (5 MG 1 IN 1 D) ORAL
     Route: 048
     Dates: start: 19980101
  4. INFLIXIMAB (INFLIXIMAB) [Suspect]
     Indication: ARTHRITIS
     Dosage: 500 MG
     Dates: start: 20040201, end: 20040801
  5. INFLIXIMAB (INFLIXIMAB) [Suspect]
     Indication: CROHN'S DISEASE
     Dosage: 500 MG
     Dates: start: 20040201, end: 20040801
  6. AZATHIOPRINE [Concomitant]
  7. MESALAMINE [Concomitant]
  8. CELECOXIB (CELECOXIB) [Concomitant]
  9. OMEPRAZOLE [Concomitant]
  10. CALCIUM CARBONATE (CALCIUM CARBONATE) [Concomitant]
  11. ALENDRONATE SODIUM [Concomitant]
  12. DURATEARS (BENZALKONIUM CHLORIDE, EDETATE DISODIUM, HYPROMELLOSE, POTA [Concomitant]
  13. PLAQUENIL [Concomitant]

REACTIONS (5)
  - ARTHRITIS [None]
  - CATARACT [None]
  - CROHN'S DISEASE [None]
  - MACULAR DEGENERATION [None]
  - VITREOUS DETACHMENT [None]
